FAERS Safety Report 21923281 (Version 2)
Quarter: 2023Q1

REPORT INFORMATION
  Report Type: Spontaneous
  Country: US (occurrence: US)
  Receive Date: 20230129
  Receipt Date: 20230306
  Transmission Date: 20230418
  Serious: Yes (Other)
  Sender: FDA-Public Use
  Company Number: US-CELLTRION INC.-2023US001858

PATIENT

DRUGS (2)
  1. TRUXIMA [Suspect]
     Active Substance: RITUXIMAB-ABBS
     Indication: Mantle cell lymphoma
     Dosage: 375 MG/M2, Q 28 DAYS/ONCE EVERY 4 WEEKS, IV VIAM PORT
     Route: 042
     Dates: start: 20221123
  2. TRUXIMA [Suspect]
     Active Substance: RITUXIMAB-ABBS
     Dosage: 375 MG PER M2/ONCE EVERY 4 WEEKS, IV VIAM PORT
     Route: 042
     Dates: start: 20221221

REACTIONS (2)
  - Mantle cell lymphoma [Recovered/Resolved]
  - Off label use [Unknown]
